FAERS Safety Report 8232580-2 (Version None)
Quarter: 2012Q1

REPORT INFORMATION
  Report Type: 
  Country: None (occurrence: None)
  Receive Date: 20120323
  Receipt Date: 20120314
  Transmission Date: 20120608
  Serious: Yes (Hospitalization, Other)
  Sender: FDA-Public Use
  Company Number: US-ELI_LILLY_AND_COMPANY-US201202004364

PATIENT
  Sex: Male
  Weight: 107.48 kg

DRUGS (15)
  1. OLANZAPINE [Suspect]
     Dosage: UNK, UNKNOWN
     Route: 030
     Dates: start: 20111103
  2. ZOLOFT [Concomitant]
     Dosage: 100 MG, UNK
  3. OLANZAPINE [Suspect]
     Dosage: UNK, UNKNOWN
     Route: 030
     Dates: start: 20111220
  4. OLANZAPINE [Suspect]
     Dosage: UNK, UNKNOWN
     Route: 030
     Dates: start: 20120126
  5. OLANZAPINE [Suspect]
     Dosage: UNK, UNKNOWN
     Route: 030
     Dates: start: 20120202
  6. PEPCID [Concomitant]
     Dosage: 20 MG, UNK
  7. OLANZAPINE [Suspect]
     Dosage: UNK, UNKNOWN
     Route: 030
     Dates: start: 20111201
  8. DEPAKOTE [Concomitant]
     Dosage: 500 MG, UNK
  9. SINGULAIR [Concomitant]
     Dosage: 10 MG, UNK
  10. KLONOPIN [Concomitant]
     Dosage: 0.5 MG, UNK
  11. OLANZAPINE [Suspect]
     Dosage: UNK, UNKNOWN
     Route: 030
     Dates: start: 20111020
  12. OLANZAPINE [Suspect]
     Dosage: UNK, UNKNOWN
     Route: 030
     Dates: start: 20111117
  13. OLANZAPINE [Suspect]
     Dosage: UNK, UNKNOWN
     Route: 030
     Dates: start: 20120119
  14. OLANZAPINE [Suspect]
     Dosage: UNK, UNKNOWN
     Route: 030
     Dates: start: 20111006
  15. OLANZAPINE [Suspect]
     Dosage: UNK, UNKNOWN
     Route: 030
     Dates: start: 20120105

REACTIONS (9)
  - AKATHISIA [None]
  - DISORIENTATION [None]
  - AGITATION [None]
  - DYSARTHRIA [None]
  - CONFUSIONAL STATE [None]
  - DELIRIUM [None]
  - DEPRESSED LEVEL OF CONSCIOUSNESS [None]
  - ATAXIA [None]
  - SEDATION [None]
